FAERS Safety Report 18086767 (Version 3)
Quarter: 2020Q3

REPORT INFORMATION
  Report Type: Spontaneous
  Country: US (occurrence: US)
  Receive Date: 20200729
  Receipt Date: 20200915
  Transmission Date: 20201103
  Serious: No
  Sender: FDA-Public Use
  Company Number: US-PFIZER INC-2020287205

PATIENT
  Age: 45 Year
  Sex: Female
  Weight: 126.98 kg

DRUGS (5)
  1. XGEVA [Concomitant]
     Active Substance: DENOSUMAB
     Dosage: 120 MG
  2. CALCIUM CARBONATE. [Concomitant]
     Active Substance: CALCIUM CARBONATE
     Dosage: UNK [500 (125)]
  3. VITAMIN D3 [Concomitant]
     Active Substance: CHOLECALCIFEROL
     Dosage: 25 UG
  4. LETROZOLE. [Concomitant]
     Active Substance: LETROZOLE
     Dosage: 2.5 MG
  5. IBRANCE [Suspect]
     Active Substance: PALBOCICLIB
     Indication: BREAST CANCER FEMALE
     Dosage: 125 MG, CYCLIC (ONCE DAILY FOR 21 DAYS)
     Route: 048
     Dates: start: 20200713

REACTIONS (3)
  - Fatigue [Unknown]
  - Muscular weakness [Unknown]
  - Stomatitis [Unknown]
